FAERS Safety Report 9970210 (Version 1)
Quarter: 2014Q1

REPORT INFORMATION
  Report Type: Spontaneous
  Country: GB (occurrence: None)
  Receive Date: 20140304
  Receipt Date: 20140304
  Transmission Date: 20141002
  Serious: Yes (Other)
  Sender: FDA-Public Use
  Company Number: GB-DEXPHARM-20140049

PATIENT
  Age: 97 Year
  Sex: Male

DRUGS (8)
  1. OMEPRAZOLE [Suspect]
     Route: 048
     Dates: start: 20120507
  2. ASPIRIN [Concomitant]
  3. BISOPROLOL [Concomitant]
  4. IBUPROFEN [Concomitant]
  5. LEVOCETIRIZINE [Concomitant]
  6. MOMETASONE [Concomitant]
  7. PARACETAMOL [Concomitant]
  8. RANITIDINE [Concomitant]

REACTIONS (1)
  - Gynaecomastia [None]
